FAERS Safety Report 5031995-3 (Version None)
Quarter: 2006Q2

REPORT INFORMATION
  Report Type: 
  Country: None (occurrence: None)
  Receive Date: 20060614
  Receipt Date: 20060530
  Transmission Date: 20061013
  Serious: Yes (Hospitalization)
  Sender: FDA-Public Use
  Company Number: 2006BH010464

PATIENT
  Age: 43 Year
  Sex: Male
  Weight: 98.8842 kg

DRUGS (5)
  1. GAMMAGARD S/D [Suspect]
     Indication: SELECTIVE IGA IMMUNODEFICIENCY
     Dosage: 30 GM; IV
     Route: 042
     Dates: end: 20060523
  2. ADVIL COLD AND SINUS [Concomitant]
  3. NASONEX [Concomitant]
  4. ADVAIR DISKUS 100/50 [Concomitant]
  5. PREDNISONE [Concomitant]

REACTIONS (5)
  - APHASIA [None]
  - BACK PAIN [None]
  - DYSARTHRIA [None]
  - FEELING ABNORMAL [None]
  - MENTAL STATUS CHANGES [None]
